FAERS Safety Report 12100310 (Version 2)
Quarter: 2016Q2

REPORT INFORMATION
  Report Type: Spontaneous
  Country: US (occurrence: US)
  Receive Date: 20160222
  Receipt Date: 20160410
  Transmission Date: 20160815
  Serious: No
  Sender: FDA-Public Use
  Company Number: US-JNJFOC-20160216528

PATIENT
  Sex: Female

DRUGS (2)
  1. INVEGA SUSTENNA [Suspect]
     Active Substance: PALIPERIDONE PALMITATE
     Indication: SCHIZOPHRENIA
     Route: 030
     Dates: start: 2015
  2. INVEGA SUSTENNA [Suspect]
     Active Substance: PALIPERIDONE PALMITATE
     Indication: SCHIZOPHRENIA
     Route: 030
     Dates: start: 201601, end: 201602

REACTIONS (8)
  - Fatigue [Unknown]
  - Pyrexia [Unknown]
  - Impaired work ability [Unknown]
  - Musculoskeletal pain [Unknown]
  - Back pain [Unknown]
  - Neck pain [Unknown]
  - Somnolence [Unknown]
  - Headache [Unknown]
